FAERS Safety Report 25032573 (Version 1)
Quarter: 2025Q1

REPORT INFORMATION
  Report Type: Spontaneous
  Country: GB (occurrence: GB)
  Receive Date: 20250303
  Receipt Date: 20250303
  Transmission Date: 20250409
  Serious: Yes (Other)
  Sender: MYLAN
  Company Number: None

PATIENT
  Sex: Female

DRUGS (5)
  1. LENALIDOMIDE [Suspect]
     Active Substance: LENALIDOMIDE
     Indication: Product used for unknown indication
     Dosage: 5 MILLIGRAM, QD (5MG DAILY)
  2. OMEPRAZOLE [Concomitant]
     Active Substance: OMEPRAZOLE
  3. ACYCLOVIR [Concomitant]
     Active Substance: ACYCLOVIR
  4. FLUCONAZOLE [Concomitant]
     Active Substance: FLUCONAZOLE
  5. FILGRASTIM [Concomitant]
     Active Substance: FILGRASTIM

REACTIONS (2)
  - Skin reaction [Unknown]
  - Intentional dose omission [Unknown]
